FAERS Safety Report 15950764 (Version 1)
Quarter: 2019Q1

REPORT INFORMATION
  Report Type: Spontaneous
  Country: US (occurrence: US)
  Receive Date: 20190211
  Receipt Date: 20190211
  Transmission Date: 20190417
  Serious: No
  Sender: FDA-Public Use
  Company Number: US-TEVA-2019-US-1002776

PATIENT
  Sex: Male

DRUGS (1)
  1. CLONAZEPAM ACTAVIS [Suspect]
     Active Substance: CLONAZEPAM
     Indication: PRODUCT USED FOR UNKNOWN INDICATION
     Dates: start: 20190115

REACTIONS (7)
  - Abdominal pain upper [Unknown]
  - Frequent bowel movements [Unknown]
  - Abdominal discomfort [Unknown]
  - Proctalgia [Unknown]
  - Drug ineffective [Unknown]
  - Tension [Unknown]
  - Product substitution issue [Unknown]

NARRATIVE: CASE EVENT DATE: 20190115
